FAERS Safety Report 7421032-5 (Version None)
Quarter: 2011Q2

REPORT INFORMATION
  Report Type: 
  Country: None (occurrence: None)
  Receive Date: 20110418
  Receipt Date: 20110407
  Transmission Date: 20111010
  Serious: Yes (Other)
  Sender: FDA-Public Use
  Company Number: CN-ASTRAZENECA-2011SE19447

PATIENT
  Age: 63 Year
  Sex: Female
  Weight: 62 kg

DRUGS (4)
  1. BETALOC [Concomitant]
  2. IRESSA [Suspect]
     Route: 048
     Dates: start: 20110401
  3. IRESSA [Suspect]
     Indication: NON-SMALL CELL LUNG CANCER
     Route: 048
     Dates: start: 20110305, end: 20110322
  4. LEVAMLODIPINE BESYLATE [Concomitant]
     Route: 048

REACTIONS (2)
  - LUNG INFECTION [None]
  - WHITE BLOOD CELL COUNT DECREASED [None]
